FAERS Safety Report 18611368 (Version 1)
Quarter: 2020Q4

REPORT INFORMATION
  Report Type: Spontaneous
  Country: TR (occurrence: TR)
  Receive Date: 20201214
  Receipt Date: 20201214
  Transmission Date: 20210114
  Serious: Yes (Life-Threatening, Hospitalization)
  Sender: FDA-Public Use
  Company Number: TR-TEVA-2020-TR-1857889

PATIENT
  Age: 12 Year
  Sex: Female

DRUGS (2)
  1. SALBUTAMOL [Suspect]
     Active Substance: ALBUTEROL
     Indication: ASTHMA
     Dosage: ON THE FIRST DAY, TWO PUFFS THRICE A DAY.
     Route: 055
  2. SALBUTAMOL [Suspect]
     Active Substance: ALBUTEROL
     Indication: ASTHMA
     Dosage: ON THE SECOND DAY, USED THREE PUFFS OVER 20 MINUTES
     Route: 055

REACTIONS (6)
  - Myocardial infarction [Recovered/Resolved]
  - Mitral valve incompetence [Recovered/Resolved]
  - Left ventricular dilatation [Recovered/Resolved]
  - Pulmonary congestion [Recovered/Resolved]
  - Tricuspid valve incompetence [Recovered/Resolved]
  - Myocarditis [Recovered/Resolved]
